FAERS Safety Report 9665064 (Version 2)
Quarter: 2013Q4

REPORT INFORMATION
  Report Type: Spontaneous
  Country: US (occurrence: US)
  Receive Date: 20131101
  Receipt Date: 20131101
  Transmission Date: 20140711
  Serious: No
  Sender: FDA-Public Use
  Company Number: US-ASTRAZENECA-2012SE11707

PATIENT
  Age: 78 Year
  Sex: Female
  Weight: 65.8 kg

DRUGS (10)
  1. SYMBICORT [Suspect]
     Indication: CHRONIC OBSTRUCTIVE PULMONARY DISEASE
     Dosage: 160MCG  BID
     Route: 055
     Dates: start: 2009
  2. SYMBICORT [Suspect]
     Indication: BRONCHIECTASIS
     Dosage: 160MCG  BID
     Route: 055
     Dates: start: 2009
  3. SYMBICORT [Suspect]
     Indication: CHRONIC OBSTRUCTIVE PULMONARY DISEASE
     Dosage: 80MCG/4.5MCG BID
     Route: 055
     Dates: start: 20120218
  4. SYMBICORT [Suspect]
     Indication: BRONCHIECTASIS
     Dosage: 80MCG/4.5MCG BID
     Route: 055
     Dates: start: 20120218
  5. SYMBICORT [Suspect]
     Indication: CHRONIC OBSTRUCTIVE PULMONARY DISEASE
     Dosage: 80/4.5 BID
     Route: 055
  6. SYMBICORT [Suspect]
     Indication: BRONCHIECTASIS
     Dosage: 80/4.5 BID
     Route: 055
  7. SYMBICORT [Suspect]
     Indication: CHRONIC OBSTRUCTIVE PULMONARY DISEASE
     Dosage: 780/4.5MCG TWO PUFFS  BID
     Route: 055
     Dates: start: 2009
  8. SYMBICORT [Suspect]
     Indication: BRONCHIECTASIS
     Dosage: 780/4.5MCG TWO PUFFS  BID
     Route: 055
     Dates: start: 2009
  9. CRESTOR [Suspect]
     Route: 048
     Dates: start: 201307
  10. VENTOLIN [Concomitant]

REACTIONS (6)
  - Blister [Unknown]
  - Rash pruritic [Unknown]
  - Muscle spasms [Unknown]
  - Blood blister [Unknown]
  - Circumstance or information capable of leading to medication error [Unknown]
  - Off label use [Unknown]
